FAERS Safety Report 9547589 (Version 1)
Quarter: 2013Q3

REPORT INFORMATION
  Report Type: Spontaneous
  Country: US (occurrence: None)
  Receive Date: 20130920
  Receipt Date: 20130920
  Transmission Date: 20140515
  Serious: Yes (Other)
  Sender: FDA-Public Use
  Company Number: IMP_06820_2013

PATIENT
  Sex: Female

DRUGS (2)
  1. CABERGOLINE [Suspect]
     Indication: PROLACTINOMA
  2. BROMOCRIPTINE [Suspect]
     Indication: PITUITARY TUMOUR BENIGN
     Dosage: (2.5MG DAILY) (5MG, DAILY (GRADUALLY INCREASED DOSE) ORAL)(2 YEARS UNTIL NOT CONTINUING)

REACTIONS (11)
  - Compulsive shopping [None]
  - Increased appetite [None]
  - Headache [None]
  - Impulse-control disorder [None]
  - Pathological gambling [None]
  - Depression [None]
  - Partner stress [None]
  - Condition aggravated [None]
  - Economic problem [None]
  - Treatment noncompliance [None]
  - Refusal of treatment by patient [None]
